FAERS Safety Report 9015999 (Version 14)
Quarter: 2017Q4

REPORT INFORMATION
  Report Type: Spontaneous
  Country: CA (occurrence: CA)
  Receive Date: 20130116
  Receipt Date: 20171004
  Transmission Date: 20180321
  Serious: Yes (Hospitalization, Other)
  Sender: FDA-Public Use
  Company Number: CA-GLAXOSMITHKLINE-A0983206A

PATIENT
  Age: 51 Year
  Sex: Female
  Weight: 101 kg

DRUGS (13)
  1. BENLYSTA [Suspect]
     Active Substance: BELIMUMAB
     Dosage: 970 MG, UNK
     Dates: start: 20170928
  2. PREDNISONE. [Concomitant]
     Active Substance: PREDNISONE
     Indication: SYSTEMIC LUPUS ERYTHEMATOSUS
     Dosage: 10 MG, U
     Route: 048
  3. BENLYSTA [Suspect]
     Active Substance: BELIMUMAB
     Indication: SYSTEMIC LUPUS ERYTHEMATOSUS
     Dosage: 1050 MG AT 0, 2, 4 WEEKS THEN EVERY 4 WEEKS
     Route: 042
     Dates: start: 20120620, end: 201412
  4. BENLYSTA [Suspect]
     Active Substance: BELIMUMAB
     Dosage: UNK
     Dates: start: 20120620
  5. HYDROXYCHLOROQUINE [Concomitant]
     Active Substance: HYDROXYCHLOROQUINE
     Indication: PRODUCT USED FOR UNKNOWN INDICATION
     Dosage: 400 MG, 1D
     Route: 065
  6. ATACAND [Concomitant]
     Active Substance: CANDESARTAN CILEXETIL
     Indication: HYPERTENSION
     Dosage: 18 MG, 1D
     Route: 065
  7. LOSEC [Concomitant]
     Active Substance: OMEPRAZOLE
     Indication: ILL-DEFINED DISORDER
     Dosage: 20 MG, UNK
     Route: 065
  8. BENLYSTA [Suspect]
     Active Substance: BELIMUMAB
     Dosage: 950 MG (0, 2,4, WKS THEN EVERY 4 WEEKS)
     Route: 042
  9. BENLYSTA [Suspect]
     Active Substance: BELIMUMAB
     Dosage: 980 MG, UNK
  10. BENLYSTA [Suspect]
     Active Substance: BELIMUMAB
     Dosage: UNK
     Dates: start: 20120620
  11. BENLYSTA [Suspect]
     Active Substance: BELIMUMAB
     Dosage: 980 MG, UNK
     Route: 042
     Dates: end: 20151207
  12. BENLYSTA [Suspect]
     Active Substance: BELIMUMAB
     Dosage: 950 MG, UNK
     Route: 042
     Dates: end: 20151207
  13. DETROL LA [Concomitant]
     Active Substance: TOLTERODINE TARTRATE
     Indication: POLLAKIURIA
     Dosage: UNK, U
     Route: 048

REACTIONS (25)
  - Abdominal pain lower [Unknown]
  - Drug dose omission [Unknown]
  - Burning sensation [Unknown]
  - Dry eye [Not Recovered/Not Resolved]
  - Headache [Recovered/Resolved]
  - Urinary tract infection [Recovered/Resolved]
  - Chest pain [Recovered/Resolved]
  - Chest discomfort [Not Recovered/Not Resolved]
  - Ovarian cyst ruptured [Recovered/Resolved]
  - Pneumonia [Unknown]
  - Nausea [Recovered/Resolved]
  - Hyperaesthesia [Unknown]
  - Pain of skin [Recovered/Resolved]
  - Malaise [Recovered/Resolved]
  - Dizziness [Recovered/Resolved]
  - Limb injury [Unknown]
  - Kidney infection [Recovered/Resolved]
  - Dry mouth [Not Recovered/Not Resolved]
  - Pulmonary embolism [Unknown]
  - Intestinal stenosis [Unknown]
  - Cardiac disorder [Unknown]
  - Cardiac arrest [Unknown]
  - Bladder pain [Recovered/Resolved]
  - Bladder disorder [Unknown]
  - Weight decreased [Unknown]

NARRATIVE: CASE EVENT DATE: 20120620
